FAERS Safety Report 23094132 (Version 1)
Quarter: 2023Q4

REPORT INFORMATION
  Report Type: Spontaneous
  Country: SG (occurrence: SG)
  Receive Date: 20231023
  Receipt Date: 20231023
  Transmission Date: 20240109
  Serious: Yes (Hospitalization, Other)
  Sender: FDA-Public Use
  Company Number: SG-009507513-2310SGP009304

PATIENT
  Age: 65 Year
  Sex: Male

DRUGS (1)
  1. PEMBROLIZUMAB [Suspect]
     Active Substance: PEMBROLIZUMAB
     Indication: Clear cell renal cell carcinoma
     Dosage: 200 MILLIGRAM, CYCLICAL

REACTIONS (3)
  - Pneumothorax [Recovered/Resolved]
  - Medical device site erosion [Recovered/Resolved]
  - Impaired healing [Recovered/Resolved]
